FAERS Safety Report 6214699-0 (Version None)
Quarter: 2009Q2

REPORT INFORMATION
  Report Type: 
  Country: None (occurrence: None)
  Receive Date: 20090604
  Receipt Date: 20090523
  Transmission Date: 20091009
  Serious: Yes (Hospitalization, Other)
  Sender: FDA-Public Use
  Company Number: US-PFIZER INC-2009193018

PATIENT
  Sex: Male

DRUGS (2)
  1. DIABINESE [Suspect]
     Indication: TYPE 2 DIABETES MELLITUS
     Dosage: 250 MG, 2X/DAY
     Route: 048
     Dates: start: 19550101
  2. CHLORPROPAMIDE [Suspect]
     Indication: TYPE 2 DIABETES MELLITUS
     Dosage: 250 MG, UNK
     Route: 048

REACTIONS (5)
  - ANGINA PECTORIS [None]
  - ANGIOPATHY [None]
  - ANGIOPLASTY [None]
  - CEREBROVASCULAR ACCIDENT [None]
  - CORONARY ARTERY BYPASS [None]
